FAERS Safety Report 18487026 (Version 7)
Quarter: 2023Q2

REPORT INFORMATION
  Report Type: Report from Study
  Country: CA (occurrence: CA)
  Receive Date: 20201110
  Receipt Date: 20230620
  Transmission Date: 20230721
  Serious: Yes (Other)
  Sender: FDA-Public Use
  Company Number: CA-AKCEA THERAPEUTICS-2020IS001275

PATIENT

DRUGS (18)
  1. TEGSEDI [Suspect]
     Active Substance: INOTERSEN SODIUM
     Indication: Hereditary neuropathic amyloidosis
     Dosage: 284 MILLIGRAM, QW
     Route: 058
     Dates: end: 20230406
  2. TEGSEDI [Suspect]
     Active Substance: INOTERSEN SODIUM
     Dosage: 284 MILLIGRAM, QW
     Route: 058
     Dates: start: 20200409
  3. TEGSEDI [Suspect]
     Active Substance: INOTERSEN SODIUM
     Dosage: 284 MILLIGRAM, QW
     Route: 058
  4. TEGSEDI [Suspect]
     Active Substance: INOTERSEN SODIUM
     Dosage: 284 MILLIGRAM, QW
     Route: 058
  5. TEGSEDI [Suspect]
     Active Substance: INOTERSEN SODIUM
     Dosage: 284 MILLIGRAM, QOW
     Route: 058
     Dates: start: 20230310
  6. PREDNISONE [Suspect]
     Active Substance: PREDNISONE
     Indication: Bell^s palsy
     Dosage: 50 MG, QD FOR 2 DAYS
     Route: 065
     Dates: start: 202010
  7. PREDNISONE [Suspect]
     Active Substance: PREDNISONE
     Dosage: 70 MG, QD FOR 5 DAYS
     Route: 065
  8. LEVOTHYROXINE [Concomitant]
     Active Substance: LEVOTHYROXINE
     Indication: Hypothyroidism
     Dosage: 50 ?G
     Route: 065
  9. FUROSEMIDE [Concomitant]
     Active Substance: FUROSEMIDE
     Indication: Product used for unknown indication
     Dosage: 20 MG, 3X/WEEK
     Route: 065
  10. GOLDEN EYE OINTMENT [Concomitant]
     Indication: Product used for unknown indication
     Route: 065
  11. LASIX [Concomitant]
     Active Substance: FUROSEMIDE
     Indication: Cardiac failure
     Route: 065
  12. LASIX [Concomitant]
     Active Substance: FUROSEMIDE
     Indication: Fluid retention
  13. BISOPROLOL [Concomitant]
     Active Substance: BISOPROLOL
     Indication: Cardiac failure
     Route: 065
  14. RAMIPRIL [Concomitant]
     Active Substance: RAMIPRIL
     Indication: Product used for unknown indication
     Dosage: 5 MILLIGRAM, QD
     Route: 048
     Dates: start: 202104, end: 202105
  15. RIVAROXABAN [Concomitant]
     Active Substance: RIVAROXABAN
     Indication: Product used for unknown indication
     Dosage: 20 MILLIGRAM, QD
     Route: 048
     Dates: start: 202104
  16. CANDESARTAN [Concomitant]
     Active Substance: CANDESARTAN
     Indication: Prophylaxis
     Dosage: UNK, QD
     Route: 065
     Dates: start: 2021
  17. HYDROCODONE BITARTRATE [Concomitant]
     Active Substance: HYDROCODONE BITARTRATE
     Indication: Product used for unknown indication
     Route: 065
  18. ALBUTEROL [Concomitant]
     Active Substance: ALBUTEROL
     Indication: Product used for unknown indication
     Route: 065

REACTIONS (98)
  - Bell^s palsy [Recovering/Resolving]
  - Limb operation [Unknown]
  - Vitamin A decreased [Not Recovered/Not Resolved]
  - Eye pain [Not Recovered/Not Resolved]
  - Vision blurred [Not Recovered/Not Resolved]
  - Dyspnoea exertional [Not Recovered/Not Resolved]
  - Cardiac dysfunction [Unknown]
  - Monocyte count decreased [Recovered/Resolved]
  - Basophil count increased [Recovered/Resolved]
  - Creatinine urine decreased [Recovered/Resolved]
  - Urine protein/creatinine ratio increased [Not Recovered/Not Resolved]
  - Platelet count decreased [Recovered/Resolved]
  - Lymphocyte count decreased [Recovered/Resolved]
  - Fatigue [Not Recovered/Not Resolved]
  - Injection site rash [Unknown]
  - Injection site pain [Not Recovered/Not Resolved]
  - Abnormal sensation in eye [Unknown]
  - Visual impairment [Unknown]
  - Injection site erythema [Unknown]
  - Dysphonia [Recovered/Resolved]
  - Haemoglobin increased [Recovered/Resolved]
  - Haematocrit increased [Recovered/Resolved]
  - Asthenopia [Not Recovered/Not Resolved]
  - Dry mouth [Not Recovered/Not Resolved]
  - Rash [Not Recovered/Not Resolved]
  - Blood pressure increased [Unknown]
  - Oropharyngeal pain [Not Recovered/Not Resolved]
  - Swelling face [Not Recovered/Not Resolved]
  - Night sweats [Not Recovered/Not Resolved]
  - Trichorrhexis [Not Recovered/Not Resolved]
  - Dry eye [Not Recovered/Not Resolved]
  - Headache [Not Recovered/Not Resolved]
  - Constipation [Unknown]
  - Back pain [Not Recovered/Not Resolved]
  - Water pollution [Unknown]
  - Pollakiuria [Unknown]
  - Pain in extremity [Not Recovered/Not Resolved]
  - Poor venous access [Not Recovered/Not Resolved]
  - Glomerular filtration rate decreased [Not Recovered/Not Resolved]
  - Abdominal pain [Not Recovered/Not Resolved]
  - Weight increased [Not Recovered/Not Resolved]
  - Mobility decreased [Recovering/Resolving]
  - Dysphagia [Recovered/Resolved]
  - Chills [Recovering/Resolving]
  - Nausea [Recovering/Resolving]
  - Pyrexia [Recovered/Resolved]
  - Injection site bruising [Not Recovered/Not Resolved]
  - Injection site haemorrhage [Unknown]
  - Weight decreased [Recovered/Resolved]
  - Swelling [Unknown]
  - Erythema [Recovering/Resolving]
  - Middle insomnia [Not Recovered/Not Resolved]
  - Dizziness [Not Recovered/Not Resolved]
  - Burning sensation [Not Recovered/Not Resolved]
  - Hypoaesthesia [Unknown]
  - Procedural anxiety [Not Recovered/Not Resolved]
  - Arthralgia [Not Recovered/Not Resolved]
  - Insomnia [Not Recovered/Not Resolved]
  - Asthenia [Not Recovered/Not Resolved]
  - Decreased activity [Not Recovered/Not Resolved]
  - Sleep disorder [Not Recovered/Not Resolved]
  - Chest discomfort [Not Recovered/Not Resolved]
  - Dermatitis contact [Recovered/Resolved]
  - Micturition urgency [Not Recovered/Not Resolved]
  - Specific gravity urine decreased [Not Recovered/Not Resolved]
  - Left ventricular dysfunction [Unknown]
  - Protein urine present [Recovered/Resolved]
  - Blood urea increased [Unknown]
  - Sensory disturbance [Not Recovered/Not Resolved]
  - Sensory loss [Not Recovered/Not Resolved]
  - Hypertension [Not Recovered/Not Resolved]
  - Contusion [Not Recovered/Not Resolved]
  - Aspartate aminotransferase increased [Recovered/Resolved]
  - Peripheral swelling [Not Recovered/Not Resolved]
  - Haemoglobin decreased [Recovered/Resolved]
  - Mean cell haemoglobin decreased [Recovered/Resolved]
  - Red cell distribution width increased [Recovered/Resolved]
  - Protein total decreased [Not Recovered/Not Resolved]
  - Angiokeratoma [Unknown]
  - Varicose vein [Unknown]
  - Dental examination abnormal [Unknown]
  - Musculoskeletal stiffness [Unknown]
  - Pain [Not Recovered/Not Resolved]
  - COVID-19 [Recovered/Resolved]
  - Nasal congestion [Not Recovered/Not Resolved]
  - Herpes zoster [Not Recovered/Not Resolved]
  - Ventricular extrasystoles [Not Recovered/Not Resolved]
  - Cough [Recovered/Resolved]
  - Pyrexia [Not Recovered/Not Resolved]
  - Cough [Not Recovered/Not Resolved]
  - COVID-19 [Recovering/Resolving]
  - Alopecia [Not Recovered/Not Resolved]
  - Confusional state [Not Recovered/Not Resolved]
  - Needle issue [Not Recovered/Not Resolved]
  - Injection site discomfort [Not Recovered/Not Resolved]
  - Fluid retention [Unknown]
  - Blood test abnormal [Unknown]
  - Abdominal pain upper [Not Recovered/Not Resolved]

NARRATIVE: CASE EVENT DATE: 20200401
